FAERS Safety Report 5245076-7 (Version None)
Quarter: 2007Q1

REPORT INFORMATION
  Report Type: 
  Country: None (occurrence: None)
  Receive Date: 20070223
  Receipt Date: 20070220
  Transmission Date: 20070707
  Serious: Yes (Other)
  Sender: FDA-Public Use
  Company Number: US-AMGEN-US211206

PATIENT

DRUGS (2)
  1. ENBREL [Suspect]
     Indication: RHEUMATOID ARTHRITIS
     Route: 065
     Dates: start: 20010101
  2. METHOTREXATE [Concomitant]
     Dates: start: 20010101

REACTIONS (1)
  - LARGE GRANULAR LYMPHOCYTOSIS [None]
